FAERS Safety Report 24936145 (Version 1)
Quarter: 2025Q1

REPORT INFORMATION
  Report Type: Spontaneous
  Country: US (occurrence: US)
  Receive Date: 20250206
  Receipt Date: 20250206
  Transmission Date: 20250408
  Serious: Yes (Other)
  Sender: ACCORD
  Company Number: US-Accord-467676

PATIENT
  Age: 40 Year
  Sex: Male

DRUGS (3)
  1. CISPLATIN [Suspect]
     Active Substance: CISPLATIN
     Indication: Malignant neoplasm of thorax
  2. ETOPOSIDE [Suspect]
     Active Substance: ETOPOSIDE
     Indication: Malignant neoplasm of thorax
  3. ATEZOLIZUMAB [Suspect]
     Active Substance: ATEZOLIZUMAB
     Indication: Malignant neoplasm of thorax

REACTIONS (3)
  - Febrile neutropenia [Unknown]
  - Groin abscess [Unknown]
  - Off label use [Unknown]
